FAERS Safety Report 19774890 (Version 5)
Quarter: 2021Q3

REPORT INFORMATION
  Report Type: Report from Study
  Country: FR (occurrence: FR)
  Receive Date: 20210901
  Receipt Date: 20210917
  Transmission Date: 20211014
  Serious: Yes (Hospitalization)
  Sender: FDA-Public Use
  Company Number: FR-ROCHE-2899111

PATIENT
  Age: 67 Year
  Sex: Female
  Weight: 56 kg

DRUGS (2)
  1. ATEZOLIZUMAB. [Suspect]
     Active Substance: ATEZOLIZUMAB
     Indication: OESOPHAGEAL SQUAMOUS CELL CARCINOMA
     Dosage: THIS WAS ALSO PATIENT^S MOST RECENT DOSE OF BLINDED ATEZOLIZUMAB PRIOR TO SAE
     Route: 042
     Dates: start: 20210816
  2. PLACEBO [Suspect]
     Active Substance: UNSPECIFIED INGREDIENT
     Indication: OESOPHAGEAL SQUAMOUS CELL CARCINOMA
     Route: 042
     Dates: start: 20210816

REACTIONS (1)
  - Radiation pneumonitis [Not Recovered/Not Resolved]

NARRATIVE: CASE EVENT DATE: 20210818
